FAERS Safety Report 4397152-9 (Version None)
Quarter: 2004Q2

REPORT INFORMATION
  Report Type: 
  Country: None (occurrence: None)
  Receive Date: 20040621
  Receipt Date: 20031215
  Transmission Date: 20050107
  Serious: Yes (Other)
  Sender: FDA-Public Use
  Company Number: USA-2003-0012099

PATIENT
  Age: 17 Year
  Sex: Male

DRUGS (2)
  1. OXYCONTIN [Suspect]
  2. COCAINE (COCAINE) [Suspect]

REACTIONS (11)
  - CHILLS [None]
  - DRUG ABUSER [None]
  - DRUG DEPENDENCE [None]
  - DRUG WITHDRAWAL SYNDROME [None]
  - EUPHORIC MOOD [None]
  - HYPERHIDROSIS [None]
  - INFLUENZA LIKE ILLNESS [None]
  - OVERDOSE [None]
  - PALPITATIONS [None]
  - PYREXIA [None]
  - TREMOR [None]
